FAERS Safety Report 5999632-9 (Version None)
Quarter: 2008Q4

REPORT INFORMATION
  Report Type: 
  Country: None (occurrence: None)
  Receive Date: 20081215
  Receipt Date: 20081202
  Transmission Date: 20090506
  Serious: Yes (Other)
  Sender: FDA-Public Use
  Company Number: CA-ROCHE-600618

PATIENT
  Sex: Female

DRUGS (1)
  1. XENICAL [Suspect]
     Indication: WEIGHT CONTROL
     Route: 048
     Dates: start: 20060101, end: 20070101

REACTIONS (5)
  - FALL [None]
  - HERNIA [None]
  - NERVE INJURY [None]
  - STEATORRHOEA [None]
  - TYPE 2 DIABETES MELLITUS [None]
